FAERS Safety Report 23225977 (Version 4)
Quarter: 2023Q4

REPORT INFORMATION
  Report Type: Report from Study
  Country: BR (occurrence: BR)
  Receive Date: 20231124
  Receipt Date: 20231213
  Transmission Date: 20240109
  Serious: Yes (Life-Threatening, Other)
  Sender: FDA-Public Use
  Company Number: BR-002147023-NVSC2023BR249349

PATIENT
  Age: 51 Year
  Sex: Female
  Weight: 60 kg

DRUGS (8)
  1. KISQALI [Suspect]
     Active Substance: RIBOCICLIB
     Indication: Breast cancer
     Dosage: 1 DOSAGE FORM, QD (1 YEAR AGO)
     Route: 048
     Dates: start: 20221221, end: 202311
  2. KISQALI [Suspect]
     Active Substance: RIBOCICLIB
     Indication: Metastases to lung
  3. KISQALI [Suspect]
     Active Substance: RIBOCICLIB
     Indication: Metastases to bone
  4. LETROZOLE [Suspect]
     Active Substance: LETROZOLE
     Indication: Breast cancer
     Dosage: 1 DOSAGE FORM, QD
     Route: 048
     Dates: end: 202311
  5. LETROZOLE [Suspect]
     Active Substance: LETROZOLE
     Indication: Metastases to lung
  6. LETROZOLE [Suspect]
     Active Substance: LETROZOLE
     Indication: Metastases to bone
  7. CAPECITABINE [Concomitant]
     Active Substance: CAPECITABINE
     Indication: Metastases to lung
     Dosage: 3 DOSAGE FORM, Q12H (IN DEC 2023)
     Route: 048
  8. CAPECITABINE [Concomitant]
     Active Substance: CAPECITABINE
     Indication: Metastases to bone

REACTIONS (11)
  - Pain [Recovering/Resolving]
  - Malignant neoplasm progression [Not Recovered/Not Resolved]
  - Breast cancer [Not Recovered/Not Resolved]
  - Metastases to bone [Not Recovered/Not Resolved]
  - Metastases to lung [Not Recovered/Not Resolved]
  - Metastases to liver [Unknown]
  - Pleural effusion [Not Recovered/Not Resolved]
  - Pulmonary pain [Recovering/Resolving]
  - Painful respiration [Recovering/Resolving]
  - Dyspnoea [Recovering/Resolving]
  - Product distribution issue [Unknown]

NARRATIVE: CASE EVENT DATE: 20231101
